FAERS Safety Report 9254146 (Version 1)
Quarter: 2013Q2

REPORT INFORMATION
  Report Type: Spontaneous
  Country: US (occurrence: None)
  Receive Date: 20130422
  Receipt Date: 20130422
  Transmission Date: 20140414
  Serious: Yes (Other)
  Sender: FDA-Public Use
  Company Number: AUR-APL-2013-03148

PATIENT
  Age: 58 Year
  Sex: Female

DRUGS (6)
  1. GABAPENTIN (GABAPENTIN) [Suspect]
     Indication: ARTHRITIS
     Dosage: 1 D
     Dates: start: 20130321, end: 20130405
  2. VENLAFAXINE (VENLAFAXINE) [Suspect]
     Indication: ARTHRITIS
     Dosage: 1 D
     Dates: start: 20130321, end: 20130405
  3. CRESTOR (ROSUVASTATIN) [Suspect]
     Indication: BLOOD CHOLESTEROL INCREASED
  4. WELCHOL (COLESEVELAM HYDROCHLORIDE) [Concomitant]
  5. XANAX (ALPRAZOLAM) [Concomitant]
  6. ZANTAC (RANITIDINE) [Concomitant]

REACTIONS (4)
  - Musculoskeletal pain [None]
  - Neck pain [None]
  - Paraesthesia [None]
  - Pain [None]
